FAERS Safety Report 24228673 (Version 1)
Quarter: 2024Q3

REPORT INFORMATION
  Report Type: Spontaneous
  Country: US (occurrence: None)
  Receive Date: 20240819
  Receipt Date: 20240819
  Transmission Date: 20241017
  Serious: No
  Sender: Public
  Company Number: None

PATIENT
  Age: 70 Year
  Sex: Male

DRUGS (1)
  1. LENALIDOMIDE [Suspect]
     Active Substance: LENALIDOMIDE
     Indication: Plasma cell myeloma
     Dosage: ?25MG QD ORAL
     Route: 048
     Dates: start: 20220729

REACTIONS (2)
  - Cough [None]
  - Therapy interrupted [None]

NARRATIVE: CASE EVENT DATE: 20240815
